FAERS Safety Report 16483519 (Version 3)
Quarter: 2019Q3

REPORT INFORMATION
  Report Type: Spontaneous
  Country: US (occurrence: US)
  Receive Date: 20190627
  Receipt Date: 20190801
  Transmission Date: 20191004
  Serious: No
  Sender: FDA-Public Use
  Company Number: US-PFIZER INC-2019273668

PATIENT
  Age: 64 Year
  Sex: Female

DRUGS (3)
  1. XELJANZ XR [Suspect]
     Active Substance: TOFACITINIB CITRATE
     Indication: RHEUMATOID ARTHRITIS
     Dosage: 11 MG, UNK
     Dates: start: 201903
  2. XELJANZ XR [Suspect]
     Active Substance: TOFACITINIB CITRATE
     Dosage: 11 MG, ONCE A DAY
     Route: 048
     Dates: start: 201904
  3. XELJANZ XR [Suspect]
     Active Substance: TOFACITINIB CITRATE
     Dosage: 11 MG, ALTERNATE DAY (11MG EVERY OTHER DAY)

REACTIONS (13)
  - Off label use [Unknown]
  - Head discomfort [Unknown]
  - Dysphonia [Unknown]
  - Breast pain [Unknown]
  - Micturition urgency [Unknown]
  - Pain [Unknown]
  - Nocturia [Unknown]
  - Feeling hot [Unknown]
  - Product dose omission [Unknown]
  - Product use issue [Unknown]
  - Headache [Unknown]
  - Temperature intolerance [Unknown]
  - Hypertension [Unknown]
